FAERS Safety Report 7354704-1 (Version None)
Quarter: 2011Q1

REPORT INFORMATION
  Report Type: 
  Country: None (occurrence: None)
  Receive Date: 20110310
  Receipt Date: 20110310
  Transmission Date: 20110831
  Serious: Yes (Hospitalization)
  Sender: FDA-Public Use
  Company Number: None

PATIENT
  Sex: Male
  Weight: 63.05 kg

DRUGS (2)
  1. OXALIPLATIN [Suspect]
     Indication: PANCREATIC CARCINOMA
     Dosage: 88MG Q 2 WEEKS IV
     Route: 042
     Dates: start: 20090409, end: 20090930
  2. SORAFENIB 200MG TABLETS BAYER [Suspect]
     Indication: PANCREATIC CARCINOMA
     Dosage: 200 MG QOD PO
     Route: 048
     Dates: start: 20090409, end: 20091014

REACTIONS (1)
  - CANCER PAIN [None]
